FAERS Safety Report 18724454 (Version 1)
Quarter: 2021Q1

REPORT INFORMATION
  Report Type: Spontaneous
  Country: US (occurrence: US)
  Receive Date: 20210108
  Receipt Date: 20210108
  Transmission Date: 20210419
  Serious: No
  Sender: FDA-Public Use
  Company Number: None

PATIENT
  Age: 33 Year
  Sex: Female
  Weight: 72.57 kg

DRUGS (1)
  1. BUPRENORPHINE HCL/ NALOXONE HCL FILM [Suspect]
     Active Substance: BUPRENORPHINE HYDROCHLORIDE\NALOXONE HYDROCHLORIDE
     Indication: DRUG DEPENDENCE
     Route: 060
     Dates: start: 20200317, end: 20210107

REACTIONS (3)
  - Swelling [None]
  - Fluid retention [None]
  - Hypersensitivity [None]

NARRATIVE: CASE EVENT DATE: 20201030
